FAERS Safety Report 13186320 (Version 1)
Quarter: 2017Q1

REPORT INFORMATION
  Report Type: Spontaneous
  Country: AU (occurrence: AU)
  Receive Date: 20170204
  Receipt Date: 20170204
  Transmission Date: 20170428
  Serious: Yes (Hospitalization, Other)
  Sender: FDA-Public Use
  Company Number: AU-009507513-2002-09-2313

PATIENT
  Age: 19 Year
  Sex: Female
  Weight: 45 kg

DRUGS (5)
  1. HYDREA [Suspect]
     Active Substance: HYDROXYUREA
     Dosage: 1000-2000 MG QD
     Dates: start: 20020915, end: 20021106
  2. INTRON A [Suspect]
     Active Substance: INTERFERON ALFA-2B
     Indication: ACUTE LEUKAEMIA
     Dosage: 7.5 MU QD IN MARCH OR APR02
     Route: 058
     Dates: start: 200203, end: 20020604
  3. INTRON A [Suspect]
     Active Substance: INTERFERON ALFA-2B
     Indication: CHRONIC MYELOID LEUKAEMIA
     Dosage: 3 MU QD (REPORTED AS 7.5 MU QD IN INITIAL REPORT)
     Route: 058
     Dates: start: 20020228, end: 2002
  4. HYDREA [Suspect]
     Active Substance: HYDROXYUREA
     Indication: ILL-DEFINED DISORDER
     Dosage: DOSE: 1000-1500 MG*, DURATION: 10 MONTH(S)
     Dates: start: 20020122, end: 20020228
  5. INTRON A [Suspect]
     Active Substance: INTERFERON ALFA-2B
     Dosage: 5 MU QD
     Route: 058
     Dates: start: 20020604, end: 20020904

REACTIONS (1)
  - Osteonecrosis [Unknown]

NARRATIVE: CASE EVENT DATE: 20020915
